FAERS Safety Report 8386207-X (Version None)
Quarter: 2012Q2

REPORT INFORMATION
  Report Type: 
  Country: None (occurrence: None)
  Receive Date: 20120525
  Receipt Date: 20120521
  Transmission Date: 20120825
  Serious: Yes (Other)
  Sender: FDA-Public Use
  Company Number: US-PFIZER INC-2012044917

PATIENT
  Sex: Female
  Weight: 97.506 kg

DRUGS (11)
  1. CELEBREX [Suspect]
     Indication: OSTEOARTHRITIS
     Dosage: 200 MG, 2X/DAY
     Route: 048
     Dates: end: 20110101
  2. ALBUTEROL [Concomitant]
     Dosage: UNK
     Route: 055
  3. PREMARIN [Concomitant]
     Dosage: 0.625 MG, 1X/DAY
  4. TRAZODONE [Concomitant]
     Dosage: 50 MG, 1X/DAY
  5. PRAVASTATIN [Concomitant]
     Dosage: UNK, 1X/DAY
  6. ALPRAZOLAM [Concomitant]
     Dosage: 0.25 MG, 1X/DAY
  7. LEVOTHYROXINE [Concomitant]
     Dosage: UNK
  8. SPIRONOLACTONE W/ HYDROCHLOROTHIAZIDE [Concomitant]
     Dosage: 25/25 MG, 1X/DAY
     Route: 048
  9. ACETYLSALICYLIC ACID [Concomitant]
     Dosage: 81 MG, 1X/DAY
  10. CELEBREX [Suspect]
     Dosage: UNK
     Dates: start: 20110101
  11. VERAPAMIL [Concomitant]
     Dosage: 180 MG, 2X/DAY

REACTIONS (8)
  - GAIT DISTURBANCE [None]
  - ROTATOR CUFF SYNDROME [None]
  - ACTIVITIES OF DAILY LIVING IMPAIRED [None]
  - FALL [None]
  - DYSSTASIA [None]
  - INTERVERTEBRAL DISC PROTRUSION [None]
  - RENAL DISORDER [None]
  - PAIN [None]
